FAERS Safety Report 6782867-5 (Version None)
Quarter: 2010Q2

REPORT INFORMATION
  Report Type: 
  Country: None (occurrence: None)
  Receive Date: 20100617
  Receipt Date: 20100604
  Transmission Date: 20101027
  Serious: Yes (Death)
  Sender: FDA-Public Use
  Company Number: 2010AC000071

PATIENT
  Age: 77 Year
  Sex: Female

DRUGS (13)
  1. DIGOXIN [Suspect]
     Dosage: PO
     Route: 048
     Dates: start: 20050525, end: 20080801
  2. DIGOXIN [Suspect]
     Dates: start: 20010101
  3. DIGOXIN [Suspect]
     Dosage: 0.25 MG; QD; PO
     Route: 048
     Dates: start: 20060101
  4. DIGOXIN [Suspect]
     Dosage: 0.125 MG; QD; PO
     Route: 048
     Dates: start: 20061001
  5. SEPTRA [Concomitant]
  6. DIFLUCAN [Concomitant]
  7. VALTREX [Concomitant]
  8. LOTRISONE [Concomitant]
  9. FLAGYL [Concomitant]
  10. CIPRO [Concomitant]
  11. XANAX [Concomitant]
  12. RELAFEN [Concomitant]
  13. FOSINOPRIL SODIUM [Concomitant]

REACTIONS (29)
  - ABDOMINAL PAIN LOWER [None]
  - ANXIETY [None]
  - BACK PAIN [None]
  - BLINDNESS UNILATERAL [None]
  - DEPRESSION [None]
  - DIZZINESS [None]
  - DYSPNOEA [None]
  - DYSURIA [None]
  - EMOTIONAL DISORDER [None]
  - FATIGUE [None]
  - GASTROINTESTINAL DISORDER [None]
  - HYPOAESTHESIA [None]
  - HYPOTENSION [None]
  - MENTAL DISORDER [None]
  - NAUSEA [None]
  - OEDEMA PERIPHERAL [None]
  - ORAL HERPES [None]
  - OROPHARYNGEAL BLISTERING [None]
  - PAIN IN EXTREMITY [None]
  - PANIC ATTACK [None]
  - POLLAKIURIA [None]
  - RASH PRURITIC [None]
  - SINUSITIS [None]
  - STOMATITIS [None]
  - SWELLING FACE [None]
  - THERAPEUTIC AGENT TOXICITY [None]
  - THINKING ABNORMAL [None]
  - URTICARIA [None]
  - VISUAL IMPAIRMENT [None]
